FAERS Safety Report 8458281-3 (Version None)
Quarter: 2012Q2

REPORT INFORMATION
  Report Type: 
  Country: None (occurrence: None)
  Receive Date: 20120615
  Receipt Date: 20120604
  Transmission Date: 20120825
  Serious: Yes (Other)
  Sender: FDA-Public Use
  Company Number: 2012P1037844

PATIENT
  Age: 67 Year
  Sex: Female

DRUGS (2)
  1. METRONIDAZOLE [Suspect]
     Indication: BILE DUCT STONE
     Dosage: 500;250 MG, IV,PO
     Route: 042
  2. METRONIDAZOLE [Suspect]
     Indication: BILIARY SEPSIS
     Dosage: 500;250 MG, IV,PO
     Route: 042

REACTIONS (6)
  - RASH PRURITIC [None]
  - BODY TEMPERATURE INCREASED [None]
  - DRUG RASH WITH EOSINOPHILIA AND SYSTEMIC SYMPTOMS [None]
  - NAUSEA [None]
  - PRESYNCOPE [None]
  - VOMITING [None]
